FAERS Safety Report 7005412-8 (Version None)
Quarter: 2010Q3

REPORT INFORMATION
  Report Type: 
  Country: None (occurrence: None)
  Receive Date: 20100917
  Receipt Date: 20100904
  Transmission Date: 20110219
  Serious: Yes (Other)
  Sender: FDA-Public Use
  Company Number: 1000016172

PATIENT
  Age: 30 Year
  Weight: 90 kg

DRUGS (2)
  1. CITALOPRAM HYDROBROMIDE [Suspect]
     Dosage: ORAL
     Route: 048
     Dates: start: 20100903, end: 20100903
  2. NOVAMINSULFON (METAMIZOLE SODIUM) (DROPS (FOR ORAL USE)) [Suspect]
     Dosage: ORAL
     Route: 048
     Dates: start: 20100903, end: 20100903

REACTIONS (3)
  - HAEMATEMESIS [None]
  - MULTIPLE DRUG OVERDOSE INTENTIONAL [None]
  - SUICIDE ATTEMPT [None]
